FAERS Safety Report 23741688 (Version 4)
Quarter: 2024Q2

REPORT INFORMATION
  Report Type: Report from Study
  Country: US (occurrence: US)
  Receive Date: 20240415
  Receipt Date: 20240531
  Transmission Date: 20240715
  Serious: Yes (Other)
  Sender: FDA-Public Use
  Company Number: US-ABBVIE-5718063

PATIENT
  Age: 35 Year
  Sex: Female
  Weight: 72.574 kg

DRUGS (10)
  1. HUMIRA [Suspect]
     Active Substance: ADALIMUMAB
     Indication: Rheumatoid arthritis
     Route: 058
     Dates: start: 20230308, end: 20230308
  2. HUMIRA [Suspect]
     Active Substance: ADALIMUMAB
     Route: 058
     Dates: start: 20230309
  3. HUMIRA [Suspect]
     Active Substance: ADALIMUMAB
     Dosage: INCREASED HUMIRA FREQUENCY
     Route: 058
     Dates: start: 20230323, end: 20240404
  4. HUMIRA [Suspect]
     Active Substance: ADALIMUMAB
     Route: 058
     Dates: start: 2024
  5. FLONASE [Concomitant]
     Active Substance: FLUTICASONE PROPIONATE
     Indication: Product used for unknown indication
     Dosage: NASAL SPRAY
     Route: 045
  6. FLONASE [Concomitant]
     Active Substance: FLUTICASONE PROPIONATE
     Indication: Product used for unknown indication
     Dosage: NASAL SPRAY
     Route: 045
     Dates: start: 2021
  7. FAMOTIDINE [Concomitant]
     Active Substance: FAMOTIDINE
     Indication: Dyspepsia
     Dosage: DAILY PM
     Route: 048
     Dates: start: 2023, end: 20240408
  8. OMEPRAZOLE [Concomitant]
     Active Substance: DONEPEZIL HYDROCHLORIDE\OMEPRAZOLE\OMEPRAZOLE MAGNESIUM
     Indication: Dyspepsia
  9. ZYRTEC [Concomitant]
     Active Substance: CETIRIZINE HYDROCHLORIDE
     Indication: Product used for unknown indication
     Dosage: PILLS
     Route: 048
  10. ESOMEPRAZOLE [Concomitant]
     Active Substance: ESOMEPRAZOLE
     Indication: Product used for unknown indication
     Route: 048

REACTIONS (13)
  - Menstruation irregular [Unknown]
  - Fatigue [Not Recovered/Not Resolved]
  - Therapeutic product effect incomplete [Unknown]
  - Rheumatoid arthritis [Not Recovered/Not Resolved]
  - Pruritus [Unknown]
  - Pain [Unknown]
  - Erythema [Not Recovered/Not Resolved]
  - Photosensitivity reaction [Recovered/Resolved]
  - Dysmenorrhoea [Unknown]
  - Photosensitivity reaction [Not Recovered/Not Resolved]
  - Sunburn [Not Recovered/Not Resolved]
  - Rash [Unknown]
  - Rhinorrhoea [Unknown]

NARRATIVE: CASE EVENT DATE: 20240101
